FAERS Safety Report 9052991 (Version 4)
Quarter: 2013Q3

REPORT INFORMATION
  Report Type: Spontaneous
  Country: US (occurrence: US)
  Receive Date: 20130208
  Receipt Date: 20130719
  Transmission Date: 20140515
  Serious: Yes (Hospitalization)
  Sender: FDA-Public Use
  Company Number: US-BIOGENIDEC-2013BI011700

PATIENT
  Age: 41 Year
  Sex: Female

DRUGS (1)
  1. TYSABRI [Suspect]
     Indication: MULTIPLE SCLEROSIS
     Route: 042
     Dates: start: 20120106

REACTIONS (4)
  - Skin ulcer [Unknown]
  - Foot amputation [Recovered/Resolved]
  - Cellulitis [Recovered/Resolved]
  - Vein disorder [Not Recovered/Not Resolved]
